FAERS Safety Report 6005773-2 (Version None)
Quarter: 2008Q4

REPORT INFORMATION
  Report Type: 
  Country: None (occurrence: None)
  Receive Date: 20081215
  Receipt Date: 20081210
  Transmission Date: 20090506
  Serious: Yes (Life-Threatening)
  Sender: FDA-Public Use
  Company Number: 2008JP005712

PATIENT
  Age: 67 Year
  Sex: Female

DRUGS (6)
  1. PROGRAF [Suspect]
     Indication: RHEUMATOID ARTHRITIS
     Dosage: 1.5 MG, D, ORAL
     Route: 048
     Dates: start: 20081121, end: 20081204
  2. FAMOTIDINE [Suspect]
     Dosage: ORAL
     Route: 048
     Dates: start: 20081001
  3. AZULFIDINE EN-TABS [Concomitant]
  4. PREDNISOLONE [Concomitant]
  5. FOSAMAC (ALENDRONATE SODIUM) [Concomitant]
  6. SULFAMETHOXAZOLE AND TRIMETHOPRIM [Concomitant]

REACTIONS (2)
  - AGRANULOCYTOSIS [None]
  - SEPSIS [None]
